FAERS Safety Report 5361705-1 (Version None)
Quarter: 2007Q2

REPORT INFORMATION
  Report Type: 
  Country: None (occurrence: None)
  Receive Date: 20070530
  Receipt Date: 20070313
  Transmission Date: 20071010
  Serious: Yes (Hospitalization)
  Sender: FDA-Public Use
  Company Number: 2007PV031740

PATIENT
  Age: 59 Year
  Sex: Female
  Weight: 73.0291 kg

DRUGS (16)
  1. BYETTA [Suspect]
     Indication: DIABETES MELLITUS NON-INSULIN-DEPENDENT
     Dosage: 10 MCG;BID;SC
     Route: 058
     Dates: start: 20060301
  2. EFFEXOR XR [Concomitant]
  3. TOPROL-XL [Concomitant]
  4. BUMETANIDE [Concomitant]
  5. IMITREX [Concomitant]
  6. FOLIC ACID [Concomitant]
  7. PREVACID [Concomitant]
  8. CLONAZEPAM [Concomitant]
  9. CLORAZEPATE [Concomitant]
  10. LISINOPRIL AND HYDROCHLOROTHIAZIDE [Concomitant]
  11. CRESTOR [Concomitant]
  12. VIVELLE [Concomitant]
  13. GLUCOPHAGE [Concomitant]
  14. M-CLEAR [Concomitant]
  15. MECLIZINE [Concomitant]
  16. METOCLOPRAMIDE [Concomitant]

REACTIONS (1)
  - PANCREATITIS [None]
